FAERS Safety Report 19517811 (Version 1)
Quarter: 2021Q3

REPORT INFORMATION
  Report Type: Spontaneous
  Country: RU (occurrence: RU)
  Receive Date: 20210712
  Receipt Date: 20210712
  Transmission Date: 20211014
  Serious: Yes (Death, Other)
  Sender: FDA-Public Use
  Company Number: RU-ASPEN-GLO2021RU005398

PATIENT

DRUGS (18)
  1. METHOTREXATE. [Suspect]
     Active Substance: METHOTREXATE
     Indication: PROPHYLAXIS AGAINST GRAFT VERSUS HOST DISEASE
     Dosage: UNK UNK, UNK
     Route: 065
     Dates: start: 201105, end: 201105
  2. VORICONAZOLE. [Suspect]
     Active Substance: VORICONAZOLE
     Indication: GRAFT VERSUS HOST DISEASE
  3. SIROLIMUS. [Suspect]
     Active Substance: SIROLIMUS
     Indication: IMMUNOSUPPRESSANT DRUG THERAPY
     Dosage: UNK UNK, UNK
     Route: 065
     Dates: start: 2011
  4. BUSULFAN. [Suspect]
     Active Substance: BUSULFAN
     Indication: ACUTE BIPHENOTYPIC LEUKAEMIA
  5. VORICONAZOLE. [Suspect]
     Active Substance: VORICONAZOLE
     Indication: ANTIFUNGAL PROPHYLAXIS
     Dosage: UNK UNK, UNK
     Route: 065
     Dates: start: 2011, end: 2011
  6. IMATINIB. [Suspect]
     Active Substance: IMATINIB MESYLATE
     Indication: CHRONIC GRAFT VERSUS HOST DISEASE
  7. ANTITHYMOCYTE IMMUNOGLOBULIN [Suspect]
     Active Substance: THYMOCYTE IMMUNE GLOBULIN NOS
     Indication: PROPHYLAXIS AGAINST GRAFT VERSUS HOST DISEASE
     Dosage: UNK UNK, UNK
     Route: 065
     Dates: start: 201105, end: 201105
  8. IMATINIB. [Suspect]
     Active Substance: IMATINIB MESYLATE
     Indication: ACUTE BIPHENOTYPIC LEUKAEMIA
     Dosage: UNK UNK, UNK
     Route: 065
     Dates: start: 201308, end: 201310
  9. BUSULFAN. [Suspect]
     Active Substance: BUSULFAN
     Indication: BONE MARROW CONDITIONING REGIMEN
     Dosage: UNK UNK, UNK
     Route: 065
     Dates: start: 201105, end: 201105
  10. CYTARABINE. [Suspect]
     Active Substance: CYTARABINE
     Indication: BONE MARROW CONDITIONING REGIMEN
     Dosage: UNK UNK, UNK
     Route: 065
     Dates: start: 201105, end: 201105
  11. DASATINIB. [Suspect]
     Active Substance: DASATINIB
     Indication: LEUKAEMIA RECURRENT
     Dosage: UNK UNK, UNK
     Route: 065
     Dates: start: 201310
  12. CYCLOPHOSPHAMIDE. [Suspect]
     Active Substance: CYCLOPHOSPHAMIDE
     Indication: BONE MARROW CONDITIONING REGIMEN
     Dosage: UNK UNK, UNK
     Route: 065
     Dates: start: 201105, end: 201105
  13. CYCLOPHOSPHAMIDE. [Suspect]
     Active Substance: CYCLOPHOSPHAMIDE
     Indication: ACUTE BIPHENOTYPIC LEUKAEMIA
  14. CYTARABINE. [Suspect]
     Active Substance: CYTARABINE
     Indication: ACUTE BIPHENOTYPIC LEUKAEMIA
  15. LOMUSTINE. [Suspect]
     Active Substance: LOMUSTINE
     Indication: BONE MARROW CONDITIONING REGIMEN
     Dosage: UNK UNK, UNK
     Route: 065
     Dates: start: 201105, end: 201105
  16. CYCLOSPORIN A [Suspect]
     Active Substance: CYCLOSPORINE
     Indication: IMMUNOSUPPRESSANT DRUG THERAPY
     Dosage: UNK UNK, UNK
     Route: 065
     Dates: start: 2011, end: 2011
  17. LOMUSTINE. [Suspect]
     Active Substance: LOMUSTINE
     Indication: ACUTE BIPHENOTYPIC LEUKAEMIA
  18. MYCOPHENOLATE MOFETIL. [Suspect]
     Active Substance: MYCOPHENOLATE MOFETIL
     Indication: PROPHYLAXIS AGAINST GRAFT VERSUS HOST DISEASE
     Dosage: UNK UNK, UNK
     Route: 065
     Dates: start: 201105, end: 201105

REACTIONS (8)
  - Acute graft versus host disease in skin [Recovered/Resolved]
  - Engraft failure [Unknown]
  - Leukaemia recurrent [Fatal]
  - Encephalitis [Recovered/Resolved]
  - Acute graft versus host disease in intestine [Recovered/Resolved]
  - Pneumonia [Unknown]
  - Disease progression [Fatal]
  - Chronic graft versus host disease in skin [Unknown]

NARRATIVE: CASE EVENT DATE: 2011
